FAERS Safety Report 20742339 (Version 1)
Quarter: 2022Q2

REPORT INFORMATION
  Report Type: Spontaneous
  Country: FR (occurrence: FR)
  Receive Date: 20220424
  Receipt Date: 20220424
  Transmission Date: 20220720
  Serious: Yes (Hospitalization)
  Sender: FDA-Public Use
  Company Number: None

PATIENT
  Age: 69 Year
  Sex: Female
  Weight: 124.7 kg

DRUGS (13)
  1. ALLOPURINOL [Suspect]
     Active Substance: ALLOPURINOL
     Indication: Gout
     Dosage: UNIT DOSE: 200 MG, FREQUENCY TIME : 1 DAY, THERAPY START DATE : ASKU
     Route: 048
  2. ATORVASTATIN [Suspect]
     Active Substance: ATORVASTATIN
     Indication: Dyslipidaemia
     Dosage: UNIT DOSE: 20 MG, FREQUENCY TIME : 1 DAY, THERAPY START DATE : ASKU
     Route: 048
  3. BISOPROLOL FUMARATE [Suspect]
     Active Substance: BISOPROLOL FUMARATE
     Indication: Tachycardia
     Dosage: BISOPROLOL (FUMARATE ACIDE DE), UNIT DOSE: 1.25 MG, FREQUENCY TIME : 1 DAY, THERAPY START DATE : ASK
     Route: 048
  4. PREGABALIN [Suspect]
     Active Substance: PREGABALIN
     Indication: Product used for unknown indication
     Dosage: UNIT DOSE: 200 MG, FREQUENCY TIME : 1 DAY, THERAPY START DATE : ASKU
     Route: 048
  5. LANSOPRAZOLE [Suspect]
     Active Substance: LANSOPRAZOLE
     Indication: Prophylaxis
     Dosage: UNIT DOSE: 30 MG, FREQUENCY TIME :1 DAY, THERAPY START DATE : ASKU
     Route: 048
  6. ALBUTEROL [Suspect]
     Active Substance: ALBUTEROL
     Indication: Pickwickian syndrome
     Dosage: THERAPY START DATE : ASKU, VENTOLINE 100 MICROGRAMS/DOSE, SUSPENSION FOR INHALATION IN A PRESSURIZE
     Route: 055
  7. KARDEGIC [Suspect]
     Active Substance: ASPIRIN DL-LYSINE
     Indication: Type 2 diabetes mellitus
     Dosage: UNIT DOSE: 1 DF, FREQUENCY TIME : 1 DAY, THERAPY START DATE : ASKU,  POWDER FOR ORAL SOLUTION IN SAC
     Route: 048
  8. SERETIDE [Suspect]
     Active Substance: FLUTICASONE PROPIONATE\SALMETEROL XINAFOATE
     Indication: Pickwickian syndrome
     Dosage: UNIT DOSE: 4 DF, FREQUENCY TIME : 1 DAY, THERAPY START DATE : ASKU,  SUSPENSION FOR INHALATION IN A
     Route: 055
  9. SPRYCEL [Suspect]
     Active Substance: DASATINIB
     Indication: Chronic myeloid leukaemia
     Dosage: UNIT DOSE: 1 DF,FREQUENCY TIME : 1 DAY, STRENGTH: 100 MG
     Route: 048
     Dates: start: 20180903
  10. FOLIC ACID [Suspect]
     Active Substance: FOLIC ACID
     Indication: Anaemia
     Dosage: ACIDE FOLIQUE, UNIT DOSE: 5 MG, FREQUENCY TIME : 1 DAY
     Route: 048
  11. COMIRNATY [Suspect]
     Active Substance: TOZINAMERAN
     Indication: COVID-19 immunisation
     Dosage: R1, UNIT DOSE: 1 DF, FREQUENCY TIME : 1 TOTAL, DURATION : 1 DAY, COMIRNATY 30 MICROGRAMS/DOSE . MRNA
     Route: 030
     Dates: start: 20220113, end: 20220113
  12. METFORMIN HYDROCHLORIDE [Concomitant]
     Active Substance: METFORMIN HYDROCHLORIDE
     Indication: Type 2 diabetes mellitus
     Dosage: UNKNOWN, CHLORHYDRATE DE METFORMINE, THERAPY START DATE : ASKU
     Route: 048
     Dates: end: 202201
  13. FUROSEMIDE [Concomitant]
     Active Substance: FUROSEMIDE
     Indication: Hypertension
     Dosage: UNIT DOSE: 40 MG, THERAPY START DATE : ASKU, FREQUENCY TIME : 1 DAY
     Route: 048

REACTIONS (1)
  - Cardiac failure [Recovering/Resolving]

NARRATIVE: CASE EVENT DATE: 20220101
